FAERS Safety Report 12954196 (Version 1)
Quarter: 2016Q4

REPORT INFORMATION
  Report Type: Spontaneous
  Country: US (occurrence: US)
  Receive Date: 20161117
  Receipt Date: 20161117
  Transmission Date: 20170207
  Serious: Yes (Hospitalization)
  Sender: FDA-Public Use
  Company Number: None

PATIENT
  Age: 39 Year
  Sex: Female
  Weight: 55.6 kg

DRUGS (2)
  1. CYCLOPHOSPHAMIDE. [Suspect]
     Active Substance: CYCLOPHOSPHAMIDE
     Dates: end: 20161104
  2. DOXORUBICIN HYDROCHLORIDE. [Suspect]
     Active Substance: DOXORUBICIN HYDROCHLORIDE
     Dates: end: 20161104

REACTIONS (7)
  - Malaise [None]
  - Device related sepsis [None]
  - Bacteraemia [None]
  - Catheter site pain [None]
  - Catheter site erythema [None]
  - Neutropenia [None]
  - Staphylococcus test positive [None]

NARRATIVE: CASE EVENT DATE: 20161109
